FAERS Safety Report 16092641 (Version 2)
Quarter: 2019Q2

REPORT INFORMATION
  Report Type: Report from Study
  Country: None (occurrence: CA)
  Receive Date: 20190319
  Receipt Date: 20190414
  Transmission Date: 20190711
  Serious: Yes (Hospitalization)
  Sender: FDA-Public Use
  Company Number: CA-ABBVIE-19K-028-2707500-00

PATIENT
  Age: 35 Year
  Sex: Female
  Weight: 50 kg

DRUGS (2)
  1. HUMIRA [Suspect]
     Active Substance: ADALIMUMAB
     Route: 058
     Dates: start: 20190313
  2. HUMIRA [Suspect]
     Active Substance: ADALIMUMAB
     Indication: CROHN^S DISEASE
     Route: 058
     Dates: start: 20130208, end: 201902

REACTIONS (11)
  - Impaired quality of life [Not Recovered/Not Resolved]
  - Gastrointestinal scarring [Recovered/Resolved]
  - Gastrointestinal disorder [Recovered/Resolved]
  - General physical health deterioration [Unknown]
  - Exposure during pregnancy [Unknown]
  - Frequent bowel movements [Not Recovered/Not Resolved]
  - Small intestinal obstruction [Recovered/Resolved]
  - Erythema nodosum [Recovered/Resolved]
  - Impaired work ability [Not Recovered/Not Resolved]
  - Faeces soft [Not Recovered/Not Resolved]
  - Anal fissure [Not Recovered/Not Resolved]

NARRATIVE: CASE EVENT DATE: 201902
